FAERS Safety Report 4622420-2 (Version None)
Quarter: 2005Q1

REPORT INFORMATION
  Report Type: 
  Country: None (occurrence: None)
  Receive Date: 20050317
  Receipt Date: 20040506
  Transmission Date: 20050727
  Serious: Yes (Hospitalization)
  Sender: FDA-Public Use
  Company Number: PHEH2004US02741

PATIENT
  Age: 12 Year
  Sex: Male
  Weight: 64.7 kg

DRUGS (1)
  1. TRILEPTAL [Suspect]
     Indication: PARTIAL SEIZURES
     Dosage: 450 MG BID ORAL
     Route: 048
     Dates: start: 20031104, end: 20031130

REACTIONS (13)
  - CONJUNCTIVITIS [None]
  - DACRYOSTENOSIS ACQUIRED [None]
  - DERMATITIS EXFOLIATIVE [None]
  - EOSINOPHIL COUNT INCREASED [None]
  - LIVER FUNCTION TEST ABNORMAL [None]
  - NASOPHARYNGEAL DISORDER [None]
  - ONYCHOMADESIS [None]
  - ORAL MUCOSAL BLISTERING [None]
  - RASH ERYTHEMATOUS [None]
  - RASH PAPULAR [None]
  - STAPHYLOCOCCAL INFECTION [None]
  - STEVENS-JOHNSON SYNDROME [None]
  - WHITE BLOOD CELL COUNT INCREASED [None]
